FAERS Safety Report 7003558-1 (Version None)
Quarter: 2010Q3

REPORT INFORMATION
  Report Type: 
  Country: None (occurrence: None)
  Receive Date: 20100916
  Receipt Date: 20100916
  Transmission Date: 20110219
  Serious: Yes (Hospitalization)
  Sender: FDA-Public Use
  Company Number: 2010EU004777

PATIENT
  Age: 64 Year
  Sex: Female
  Weight: 60 kg

DRUGS (3)
  1. PROGRAF [Suspect]
     Indication: LUNG TRANSPLANT
     Dosage: 3 MG, BID, OTHER; 5 MG, BID, OTHER
     Route: 050
  2. PREDNISOLONE [Concomitant]
  3. CELLCEPT [Concomitant]

REACTIONS (4)
  - GASTROINTESTINAL TUBE INSERTION [None]
  - NEOPLASM [None]
  - OBSTRUCTION [None]
  - OFF LABEL USE [None]
